FAERS Safety Report 18563131 (Version 1)
Quarter: 2020Q4

REPORT INFORMATION
  Report Type: Other
  Country: JP (occurrence: JP)
  Receive Date: 20201201
  Receipt Date: 20201201
  Transmission Date: 20210114
  Serious: Yes (Other)
  Sender: FDA-Public Use
  Company Number: JP-ROCHE-2627067

PATIENT
  Age: 59 Year
  Sex: Male
  Weight: 57 kg

DRUGS (7)
  1. TECENTRIQ [Suspect]
     Active Substance: ATEZOLIZUMAB
     Indication: LUNG NEOPLASM MALIGNANT
     Route: 041
  2. ESOMEPRAZOLE MAGNESIUM. [Concomitant]
     Active Substance: ESOMEPRAZOLE MAGNESIUM
     Dosage: DOSAGE IS UNCERTAIN.
     Route: 048
  3. CELECOXIB. [Concomitant]
     Active Substance: CELECOXIB
     Dosage: DOSAGE IS UNCERTAIN.
     Route: 048
  4. PREGABALIN. [Concomitant]
     Active Substance: PREGABALIN
     Dosage: DOSAGE IS UNCERTAIN.
     Route: 048
  5. MECOBALAMIN [Concomitant]
     Active Substance: METHYLCOBALAMIN
     Dosage: DOSAGE IS UNCERTAIN.
     Route: 048
  6. BEPOTASTINE BESILATE [Concomitant]
     Active Substance: BEPOTASTINE BESYLATE
     Dosage: DOSAGE IS UNCERTAIN.
     Route: 048
  7. LEVETIRACETAM. [Concomitant]
     Active Substance: LEVETIRACETAM
     Dosage: DOSAGE IS UNCERTAIN.
     Route: 048

REACTIONS (2)
  - Drug-induced liver injury [Recovered/Resolved]
  - Sinusitis fungal [Unknown]
